FAERS Safety Report 11229169 (Version 1)
Quarter: 2015Q2

REPORT INFORMATION
  Report Type: Other
  Country: JP (occurrence: JP)
  Receive Date: 20150630
  Receipt Date: 20150630
  Transmission Date: 20150821
  Serious: Yes (Congenital Anomaly, Other)
  Sender: FDA-Public Use
  Company Number: JP-APOTEX-2015AP010265

PATIENT

DRUGS (20)
  1. PAXIL [Suspect]
     Active Substance: PAROXETINE HYDROCHLORIDE
     Indication: BORDERLINE PERSONALITY DISORDER
     Dosage: 20 MG, QD
     Route: 064
     Dates: start: 2007, end: 201410
  2. PAXIL [Suspect]
     Active Substance: PAROXETINE HYDROCHLORIDE
     Indication: PANIC DISORDER
  3. GOODMIN [Suspect]
     Active Substance: BROTIZOLAM
     Indication: PANIC DISORDER
  4. AKIRIDEN [Suspect]
     Active Substance: BIPERIDEN
     Indication: BORDERLINE PERSONALITY DISORDER
     Dosage: 1 MG, QD
     Route: 064
     Dates: start: 2007, end: 201410
  5. GOODMIN [Suspect]
     Active Substance: BROTIZOLAM
     Indication: BORDERLINE PERSONALITY DISORDER
     Dosage: 0.25 MG, QD
     Route: 064
     Dates: start: 2007, end: 201410
  6. ETISEDAN [Suspect]
     Active Substance: ETIZOLAM
     Indication: BORDERLINE PERSONALITY DISORDER
     Dosage: 1 MG, TID
     Route: 064
     Dates: start: 2007, end: 201410
  7. PROGESTERONE. [Concomitant]
     Active Substance: PROGESTERONE
     Indication: PRODUCT USED FOR UNKNOWN INDICATION
     Dosage: UNK
     Route: 064
     Dates: start: 201407
  8. OXYTOCIN. [Concomitant]
     Active Substance: OXYTOCIN
     Indication: INDUCED LABOUR
     Dosage: UNK
     Route: 064
     Dates: start: 20150512
  9. RISPERIDONE. [Concomitant]
     Active Substance: RISPERIDONE
     Indication: PRODUCT USED FOR UNKNOWN INDICATION
     Dosage: UNK UNK, PRN
     Route: 064
     Dates: start: 201505
  10. CALMDOWN                           /00595201/ [Suspect]
     Active Substance: ALPRAZOLAM
     Indication: BORDERLINE PERSONALITY DISORDER
     Dosage: 0.4 MG, TID
     Route: 064
     Dates: start: 2007, end: 201410
  11. UNKNOWN DRUG [Concomitant]
     Active Substance: UNSPECIFIED INGREDIENT
     Indication: PRODUCT USED FOR UNKNOWN INDICATION
     Dosage: UNK
     Route: 064
     Dates: start: 201407
  12. ASPIRIN. [Concomitant]
     Active Substance: ASPIRIN
     Indication: PRODUCT USED FOR UNKNOWN INDICATION
     Dosage: UNK
     Route: 064
     Dates: start: 201407
  13. ETISEDAN [Suspect]
     Active Substance: ETIZOLAM
     Indication: PANIC DISORDER
  14. ABILIFY [Suspect]
     Active Substance: ARIPIPRAZOLE
     Indication: PANIC DISORDER
  15. DINOPROST [Concomitant]
     Active Substance: DINOPROST
     Indication: PRODUCT USED FOR UNKNOWN INDICATION
     Dosage: UNK
     Route: 064
     Dates: start: 20150513
  16. ABILIFY [Suspect]
     Active Substance: ARIPIPRAZOLE
     Indication: BORDERLINE PERSONALITY DISORDER
     Dosage: 6 MG, QD
     Route: 064
     Dates: start: 2007, end: 201410
  17. AMPICILLIN SODIUM W/SULBACTAM SODIUM [Concomitant]
     Active Substance: AMPICILLIN SODIUM\SULBACTAM SODIUM
     Indication: PRODUCT USED FOR UNKNOWN INDICATION
     Dosage: UNK
     Route: 064
     Dates: start: 20150512
  18. AKIRIDEN [Suspect]
     Active Substance: BIPERIDEN
     Indication: PANIC DISORDER
  19. BLONANSERIN [Concomitant]
     Active Substance: BLONANSERIN
     Indication: PRODUCT USED FOR UNKNOWN INDICATION
     Route: 064
  20. ESTRADIOL. [Concomitant]
     Active Substance: ESTRADIOL
     Indication: PRODUCT USED FOR UNKNOWN INDICATION
     Dosage: UNK
     Route: 064
     Dates: start: 201407

REACTIONS (6)
  - Congenital foot malformation [Not Recovered/Not Resolved]
  - Limb reduction defect [Not Recovered/Not Resolved]
  - Syndactyly [Not Recovered/Not Resolved]
  - Brachydactyly [Not Recovered/Not Resolved]
  - Foetal exposure during pregnancy [Unknown]
  - Limb deformity [Not Recovered/Not Resolved]

NARRATIVE: CASE EVENT DATE: 20150513
